FAERS Safety Report 4597615-7 (Version None)
Quarter: 2005Q1

REPORT INFORMATION
  Report Type: 
  Country: None (occurrence: None)
  Receive Date: 20050228
  Receipt Date: 20050228
  Transmission Date: 20050727
  Serious: Yes (Hospitalization)
  Sender: FDA-Public Use
  Company Number: None

PATIENT
  Sex: Male

DRUGS (15)
  1. HEPARIN [Suspect]
     Indication: DISSEMINATED INTRAVASCULAR COAGULATION
     Dosage: TITRATION PROTOCOL IV
     Route: 042
     Dates: start: 20040407, end: 20040414
  2. FENTANYL [Concomitant]
  3. VANCOMYCIN [Concomitant]
  4. PROPOFOL [Concomitant]
  5. VECURONIUM [Concomitant]
  6. LEVOFLOXACIN [Concomitant]
  7. SENNA [Concomitant]
  8. DOCUSATE [Concomitant]
  9. FLUCONAZOLE [Concomitant]
  10. SODIUM POLYSTYRENE SULFONATE [Concomitant]
  11. COTRIM [Concomitant]
  12. FUROSEMIDE [Concomitant]
  13. OMEPRAZOLE [Concomitant]
  14. AZITHROMYCIN [Concomitant]
  15. GANCICLOVIR [Concomitant]

REACTIONS (1)
  - CEREBRAL HAEMORRHAGE [None]
